FAERS Safety Report 5402779-9 (Version None)
Quarter: 2007Q3

REPORT INFORMATION
  Report Type: 
  Country: None (occurrence: None)
  Receive Date: 20070730
  Receipt Date: 20070720
  Transmission Date: 20080115
  Serious: Yes (Hospitalization)
  Sender: FDA-Public Use
  Company Number: 2007SP001250

PATIENT
  Age: 48 Year
  Sex: Male

DRUGS (4)
  1. PEG-INTRON [Suspect]
     Indication: HEPATITIS C
     Dosage: 100 MCG; QW
     Dates: start: 20060516, end: 20060821
  2. REBETOL [Concomitant]
     Indication: HEPATITIS C
     Dosage: 400 MG;QAM; 600 MG; QPM
     Dates: start: 20060516, end: 20060815
  3. REBETOL [Concomitant]
     Indication: HEPATITIS C
     Dosage: 400 MG;QAM; 600 MG; QPM
     Dates: start: 20060516, end: 20060815
  4. DEANXIT [Concomitant]

REACTIONS (4)
  - BLOOD GLUCOSE INCREASED [None]
  - MENINGITIS ASEPTIC [None]
  - RED BLOOD CELL COUNT DECREASED [None]
  - WHITE BLOOD CELL COUNT DECREASED [None]
